FAERS Safety Report 10234522 (Version 1)
Quarter: 2014Q2

REPORT INFORMATION
  Report Type: Report from Study
  Country: US (occurrence: US)
  Receive Date: 20140613
  Receipt Date: 20140613
  Transmission Date: 20141212
  Serious: Yes (Life-Threatening, Other)
  Sender: FDA-Public Use
  Company Number: US-ROCHE-1418210

PATIENT
  Age: 72 Year
  Sex: Female
  Weight: 41.31 kg

DRUGS (5)
  1. HERCEPTIN [Suspect]
     Indication: BREAST CANCER
     Route: 065
     Dates: start: 20140210
  2. TAXOTERE [Concomitant]
     Indication: BREAST CANCER
     Route: 065
     Dates: start: 20140210, end: 20140301
  3. TAXOL [Concomitant]
     Indication: BREAST CANCER
     Route: 065
     Dates: start: 20140308, end: 20140404
  4. TYLENOL [Concomitant]
     Indication: HEADACHE
     Route: 048
     Dates: start: 20140210
  5. DECADRON [Concomitant]
     Route: 065
     Dates: start: 20140210, end: 20140404

REACTIONS (6)
  - Blood pressure increased [Recovered/Resolved]
  - Flushing [Recovered/Resolved]
  - Anaphylactic reaction [Recovered/Resolved]
  - Oesophageal stenosis [Recovering/Resolving]
  - Oesophageal dilatation [Recovering/Resolving]
  - Eructation [Not Recovered/Not Resolved]
